FAERS Safety Report 7361050-9 (Version None)
Quarter: 2011Q1

REPORT INFORMATION
  Report Type: 
  Country: None (occurrence: None)
  Receive Date: 20110318
  Receipt Date: 20110316
  Transmission Date: 20110831
  Serious: Yes (Hospitalization)
  Sender: FDA-Public Use
  Company Number: US-ROCHE-764077

PATIENT
  Sex: Female
  Weight: 67 kg

DRUGS (1)
  1. TRASTUZUMAB-MCC-DM1 [Suspect]
     Indication: BREAST CANCER
     Dosage: 201 UNK, UNK
     Route: 042
     Dates: start: 20101001

REACTIONS (1)
  - GASTROINTESTINAL HAEMORRHAGE [None]
